FAERS Safety Report 10186240 (Version 1)
Quarter: 2014Q2

REPORT INFORMATION
  Report Type: Spontaneous
  Country: PT (occurrence: PT)
  Receive Date: 20140521
  Receipt Date: 20140521
  Transmission Date: 20141212
  Serious: Yes (Hospitalization, Other)
  Sender: FDA-Public Use
  Company Number: PT-ABBVIE-14P-130-1238293-00

PATIENT
  Sex: Male
  Weight: .61 kg

DRUGS (4)
  1. KALETRA [Suspect]
     Indication: MATERNAL EXPOSURE TIMING UNSPECIFIED
     Route: 064
  2. RETROVIR IV INFUSION [Interacting]
     Indication: MATERNAL EXPOSURE TIMING UNSPECIFIED
     Route: 064
  3. ZIDOVUDINE [Suspect]
     Indication: MATERNAL EXPOSURE TIMING UNSPECIFIED
     Route: 064
  4. TRUVADA [Suspect]
     Indication: MATERNAL EXPOSURE TIMING UNSPECIFIED
     Route: 064

REACTIONS (8)
  - Thrombocytopenia [Recovered/Resolved]
  - Anaemia [Recovered/Resolved]
  - Leukopenia [Recovered/Resolved]
  - Neutropenia [Recovered/Resolved]
  - Foetal exposure during pregnancy [Unknown]
  - Sepsis neonatal [Unknown]
  - Premature baby [Unknown]
  - Drug interaction [Unknown]
